FAERS Safety Report 8901331 (Version 1)
Quarter: 2012Q4

REPORT INFORMATION
  Report Type: 
  Country: US (occurrence: US)
  Receive Date: 20121109
  Receipt Date: 20121109
  Transmission Date: 20130627
  Serious: No
  Sender: FDA-Public Use
  Company Number: US-PFIZER INC-2012276769

PATIENT
  Age: 11 Year
  Sex: Male
  Weight: 25.9 kg

DRUGS (1)
  1. GENOTROPIN MQ [Suspect]
     Dosage: 1.2 mg, (Every night at bedtime)
     Route: 058

REACTIONS (1)
  - Injection site pain [Unknown]
